FAERS Safety Report 20836121 (Version 2)
Quarter: 2022Q2

REPORT INFORMATION
  Report Type: Report from Study
  Country: DE (occurrence: DE)
  Receive Date: 20220516
  Receipt Date: 20220626
  Transmission Date: 20220720
  Serious: No
  Sender: FDA-Public Use
  Company Number: DE-BRISTOL-MYERS SQUIBB COMPANY-2022-040730

PATIENT
  Age: 41 Year
  Sex: Female
  Weight: 61 kg

DRUGS (3)
  1. OZANIMOD [Suspect]
     Active Substance: OZANIMOD
     Indication: Multiple sclerosis
     Route: 048
  2. IBUPROFEN [Concomitant]
     Active Substance: IBUPROFEN
     Indication: Product used for unknown indication
     Dates: start: 20211004
  3. HERBALS\TURMERIC [Concomitant]
     Active Substance: HERBALS\TURMERIC
     Indication: Prophylaxis
     Dates: start: 20211004

REACTIONS (4)
  - Gastrointestinal disorder [Recovered/Resolved]
  - Pyrexia [Unknown]
  - Back pain [Unknown]
  - Diarrhoea [Unknown]

NARRATIVE: CASE EVENT DATE: 20211129
